FAERS Safety Report 23105049 (Version 1)
Quarter: 2023Q4

REPORT INFORMATION
  Report Type: Spontaneous
  Country: US (occurrence: US)
  Receive Date: 20231025
  Receipt Date: 20231025
  Transmission Date: 20240109
  Serious: Yes (Other)
  Sender: FDA-Public Use
  Company Number: US-BAXTER-2023BAX033787

PATIENT
  Age: 65 Year
  Sex: Male

DRUGS (4)
  1. NEXTERONE [Suspect]
     Active Substance: AMIODARONE HYDROCHLORIDE
     Indication: Ventricular tachycardia
     Dosage: INFUSION
     Route: 040
  2. LIDOCAINE [Suspect]
     Active Substance: LIDOCAINE
     Indication: Ventricular tachycardia
     Dosage: INFUSION
     Route: 065
  3. LIDOCAINE [Suspect]
     Active Substance: LIDOCAINE
     Indication: Disease recurrence
     Dosage: RE-INITIATION OF THE LIDOCAINE INFUSION
     Route: 065
  4. LIDOCAINE [Suspect]
     Active Substance: LIDOCAINE
     Dosage: INFUSION RATE WAS INCREASED
     Route: 065

REACTIONS (13)
  - Thyrotoxic crisis [Recovering/Resolving]
  - Vascular graft complication [Recovering/Resolving]
  - Cardiogenic shock [Recovering/Resolving]
  - Restlessness [Recovering/Resolving]
  - Agitation [Recovering/Resolving]
  - Delirium [Recovering/Resolving]
  - Blood pressure fluctuation [Recovering/Resolving]
  - Tachycardia [Recovered/Resolved]
  - Hyperthyroidism [Recovering/Resolving]
  - Tachyarrhythmia [Recovering/Resolving]
  - Arrhythmic storm [Recovering/Resolving]
  - Respiratory failure [Recovering/Resolving]
  - Drug ineffective [Unknown]
